FAERS Safety Report 22589049 (Version 2)
Quarter: 2023Q2

REPORT INFORMATION
  Report Type: Report from Study
  Country: US (occurrence: US)
  Receive Date: 20230612
  Receipt Date: 20230619
  Transmission Date: 20230721
  Serious: Yes (Hospitalization)
  Sender: FDA-Public Use
  Company Number: US-GSKCCFUS-Case-01720303_AE-96981

PATIENT

DRUGS (2)
  1. BELIMUMAB [Interacting]
     Active Substance: BELIMUMAB
     Indication: Lupus nephritis
     Dosage: UNK UNK, WE
     Dates: start: 20230412
  2. DUPIXENT [Suspect]
     Active Substance: DUPILUMAB
     Indication: Neurodermatitis
     Dosage: 300 MG, Q2W

REACTIONS (14)
  - Eyelid margin crusting [Not Recovered/Not Resolved]
  - Palpitations [Unknown]
  - Chest pain [Unknown]
  - Dyspnoea [Unknown]
  - Upper respiratory tract infection [Unknown]
  - Somnolence [Unknown]
  - Flatulence [Unknown]
  - Pain [Unknown]
  - Neck pain [Unknown]
  - Headache [Unknown]
  - Drug interaction [Unknown]
  - Swelling [Unknown]
  - Arthralgia [Unknown]
  - Product dose omission issue [Unknown]

NARRATIVE: CASE EVENT DATE: 20230524
